FAERS Safety Report 6649349-2 (Version None)
Quarter: 2010Q1

REPORT INFORMATION
  Report Type: 
  Country: None (occurrence: None)
  Receive Date: 20100324
  Receipt Date: 20091019
  Transmission Date: 20100710
  Serious: Yes (Hospitalization)
  Sender: FDA-Public Use
  Company Number: PHHY2009TW60975

PATIENT

DRUGS (1)
  1. GLEEVEC [Suspect]
     Indication: GASTROINTESTINAL STROMAL TUMOUR
     Dosage: 400

REACTIONS (5)
  - HAEMOGLOBIN DECREASED [None]
  - MELAENA [None]
  - PYREXIA [None]
  - TUMOUR ULCERATION [None]
  - WHITE BLOOD CELL COUNT DECREASED [None]
